FAERS Safety Report 17825026 (Version 1)
Quarter: 2020Q2

REPORT INFORMATION
  Report Type: Spontaneous
  Country: US (occurrence: US)
  Receive Date: 20200526
  Receipt Date: 20200526
  Transmission Date: 20200714
  Serious: No
  Sender: FDA-Public Use
  Company Number: US-SA-2020SA134486

PATIENT
  Sex: Female
  Weight: 59 kg

DRUGS (6)
  1. VITAMIN D [VITAMIN D NOS] [Concomitant]
     Active Substance: VITAMIN D NOS
  2. ASPIRIN (E.C.) [Concomitant]
     Active Substance: ASPIRIN
  3. TAGAMET [Concomitant]
     Active Substance: CIMETIDINE
  4. PLAVIX [Suspect]
     Active Substance: CLOPIDOGREL BISULFATE
  5. METOPROLOL. [Concomitant]
     Active Substance: METOPROLOL
  6. POTASSIUM [Concomitant]
     Active Substance: POTASSIUM

REACTIONS (1)
  - Drug withdrawal syndrome [Unknown]
